FAERS Safety Report 6789117-4 (Version None)
Quarter: 2010Q2

REPORT INFORMATION
  Report Type: 
  Country: None (occurrence: None)
  Receive Date: 20100623
  Receipt Date: 20080915
  Transmission Date: 20101027
  Serious: No
  Sender: FDA-Public Use
  Company Number: US-PFIZER INC-2008056508

PATIENT
  Sex: Female

DRUGS (5)
  1. GEODON [Suspect]
  2. ZOLOFT [Concomitant]
  3. GABAPENTIN [Concomitant]
  4. CLOMIPRAMINE [Concomitant]
  5. VALIUM [Concomitant]

REACTIONS (2)
  - ENURESIS [None]
  - INCORRECT DOSE ADMINISTERED [None]
